FAERS Safety Report 21122576 (Version 1)
Quarter: 2022Q3

REPORT INFORMATION
  Report Type: Spontaneous
  Country: US (occurrence: US)
  Receive Date: 20220723
  Receipt Date: 20220723
  Transmission Date: 20221027
  Serious: No
  Sender: FDA-Public Use
  Company Number: 2022ALB0128

PATIENT

DRUGS (4)
  1. CELECOXIB [Suspect]
     Active Substance: CELECOXIB
     Indication: Arthritis
     Dosage: 200 MG, BID
     Route: 048
     Dates: start: 20220626
  2. CELECOXIB [Suspect]
     Active Substance: CELECOXIB
     Indication: Pain
  3. CELECOXIB [Suspect]
     Active Substance: CELECOXIB
     Indication: Swelling
  4. LEVOTHYROXINE [Concomitant]
     Active Substance: LEVOTHYROXINE
     Indication: Thyroid disorder
     Dosage: 125 MCG
     Route: 048

REACTIONS (1)
  - Drug ineffective [Unknown]
